FAERS Safety Report 10173255 (Version 1)
Quarter: 2014Q2

REPORT INFORMATION
  Report Type: Spontaneous
  Country: US (occurrence: US)
  Receive Date: 20140515
  Receipt Date: 20140515
  Transmission Date: 20141212
  Serious: No
  Sender: FDA-Public Use
  Company Number: US-PFIZER INC-2014132415

PATIENT
  Sex: Male

DRUGS (1)
  1. GABAPENTIN [Suspect]
     Indication: BURNING SENSATION
     Dosage: UNK
     Dates: start: 2013

REACTIONS (4)
  - Tremor [Unknown]
  - Myalgia [Unknown]
  - Fatigue [Unknown]
  - Eye irritation [Unknown]
